FAERS Safety Report 5944339-7 (Version None)
Quarter: 2008Q4

REPORT INFORMATION
  Report Type: 
  Country: None (occurrence: None)
  Receive Date: 20081105
  Receipt Date: 20081021
  Transmission Date: 20090506
  Serious: Yes (Other)
  Sender: FDA-Public Use
  Company Number: 8037944

PATIENT
  Age: 44 Year
  Sex: Female
  Weight: 77.73 kg

DRUGS (4)
  1. CIMZIA [Suspect]
     Indication: CROHN'S DISEASE
     Dosage: NT 1/2 QW SC
     Route: 058
  2. HUMIRA [Suspect]
     Dosage: NT 1/2 W
  3. ZYRTEC [Concomitant]
  4. BENADRYL [Concomitant]

REACTIONS (3)
  - HERPES ZOSTER [None]
  - SINUSITIS [None]
  - STEVENS-JOHNSON SYNDROME [None]
